FAERS Safety Report 16839989 (Version 1)
Quarter: 2019Q3

REPORT INFORMATION
  Report Type: Spontaneous
  Country: CN (occurrence: CN)
  Receive Date: 20190923
  Receipt Date: 20190923
  Transmission Date: 20191005
  Serious: Yes (Other)
  Sender: FDA-Public Use
  Company Number: CN-PFIZER INC-2019403991

PATIENT
  Age: 39 Year
  Sex: Male
  Weight: 50 kg

DRUGS (1)
  1. TYGACIL [Suspect]
     Active Substance: TIGECYCLINE
     Indication: INFECTION
     Dosage: 100 MG, 2X/DAY
     Route: 041
     Dates: start: 20190301, end: 20190306

REACTIONS (2)
  - Pancreatitis necrotising [Recovering/Resolving]
  - Pancreatitis haemorrhagic [Recovering/Resolving]

NARRATIVE: CASE EVENT DATE: 20190306
